FAERS Safety Report 5217698-0 (Version None)
Quarter: 2006Q4

REPORT INFORMATION
  Report Type: 
  Country: None (occurrence: None)
  Receive Date: 20061130
  Receipt Date: 20060815
  Transmission Date: 20070319
  Serious: Yes (Hospitalization)
  Sender: FDA-Public Use
  Company Number: US200601000865

PATIENT
  Age: 39 Year
  Sex: Male
  Weight: 114.3 kg

DRUGS (2)
  1. ZYPREXA [Suspect]
     Indication: SCHIZOPHRENIA
     Dosage: 5 MG,; 10 MG,
     Dates: start: 19980925, end: 20010407
  2. LITHIUM CARBONATE [Concomitant]

REACTIONS (4)
  - DEPRESSION [None]
  - DIABETES MELLITUS NON-INSULIN-DEPENDENT [None]
  - SUICIDAL IDEATION [None]
  - WEIGHT INCREASED [None]
